FAERS Safety Report 25671890 (Version 1)
Quarter: 2025Q3

REPORT INFORMATION
  Report Type: Spontaneous
  Country: US (occurrence: US)
  Receive Date: 20250812
  Receipt Date: 20250812
  Transmission Date: 20251021
  Serious: No
  Sender: FRESENIUS KABI
  Company Number: US-FreseniusKabi-FK202510771

PATIENT
  Age: 90 Year
  Sex: Male
  Weight: 49.03 kg

DRUGS (2)
  1. DOXY 100 [Suspect]
     Active Substance: DOXYCYCLINE HYCLATE
     Indication: Product used for unknown indication
     Route: 042
  2. SODIUM CHLORIDE [Suspect]
     Active Substance: SODIUM CHLORIDE
     Indication: Product used for unknown indication

REACTIONS (2)
  - Burning sensation [Unknown]
  - Injection site pain [Unknown]
